FAERS Safety Report 10225175 (Version 1)
Quarter: 2014Q1

REPORT INFORMATION
  Report Type: Spontaneous
  Country: US (occurrence: None)
  Receive Date: 20140306
  Receipt Date: 20140306
  Transmission Date: 20141002
  Serious: Yes (Hospitalization)
  Sender: FDA-Public Use
  Company Number: 163-21880-13112556

PATIENT
  Age: 81 Year
  Sex: Female
  Weight: 73 kg

DRUGS (25)
  1. REVLIMID (LENALIDOMIDE) (25 MILLIGRAM, CAPSULES) [Suspect]
     Indication: PLASMA CELL MYELOMA
     Dosage: 25 MG, 21 IN 28 D, PO
     Route: 048
     Dates: start: 20130423, end: 2013
  2. PIROXICAM (PIROXICAM) [Concomitant]
  3. AVASTIN (BEVACIZUMAB) [Concomitant]
  4. VELCADE (BORTEZOMIB) [Concomitant]
  5. ACYCLOVIR (ACICLOVIR) [Concomitant]
  6. CARDIZEM (DILTIAZEM HYDROCHLORIDE) [Concomitant]
  7. CENTRUM SILVER (CENTRUM SILVER) [Concomitant]
  8. CIPRO (CIPROFLOXACIN) [Concomitant]
  9. CITRACAL (CALCIUM CITRATE) [Concomitant]
  10. COSAMIN (COSAMIN) [Concomitant]
  11. DEXAMETHASONE (DEXAMETHASONE) [Concomitant]
  12. DIGOXIN (DIGOXIN) [Concomitant]
  13. FISH OIL (FISH OIL) [Concomitant]
  14. ICAPS (ICAPS) [Concomitant]
  15. LEVAQUIN (LEVOFLOXACIN) [Concomitant]
  16. LIBRIUM (CHLORDIAZEPOXIDE HYDROCHLORIDE) [Concomitant]
  17. LIPITOR (ATORVASTATIN) [Concomitant]
  18. ONDANSETRON (ONDANSETRON) [Concomitant]
  19. PENICILLIN V POTASSIUM (PHENOXYMETHYLPENICILLIN POTASSIUM) [Concomitant]
  20. PEPCID (FAMOTIDINE) [Concomitant]
  21. PRADAXA (DABIGATRAN ETEXILATE MESILATE) [Concomitant]
  22. RESTASIS (CICLOSPORIN) [Concomitant]
  23. SYNTHROID (LEVOTHYROXINE SODIUM) [Concomitant]
  24. TRAMADOL (TRAMADOL) [Concomitant]
  25. TYLENOL ARTHRITIS (PARACETAMOL) [Concomitant]

REACTIONS (1)
  - Cerebrovascular accident [None]
